FAERS Safety Report 8298080-9 (Version None)
Quarter: 2012Q2

REPORT INFORMATION
  Report Type: 
  Country: None (occurrence: None)
  Receive Date: 20120419
  Receipt Date: 20120406
  Transmission Date: 20120825
  Serious: Yes (Other)
  Sender: FDA-Public Use
  Company Number: JP-ROCHE-1051398

PATIENT
  Sex: Male
  Weight: 20 kg

DRUGS (3)
  1. TAMIFLU [Suspect]
     Dosage: DOSAGE IS UNCERTAIN.
     Route: 048
     Dates: start: 20120309, end: 20120309
  2. TAMIFLU [Suspect]
     Indication: INFLUENZA
     Dosage: DOSAGE IS UNCERTAIN.
     Route: 048
     Dates: start: 20120307, end: 20120307
  3. TAMIFLU [Suspect]
     Dosage: DOSAGE IS UNCERTAIN.
     Route: 048
     Dates: start: 20120308, end: 20120308

REACTIONS (1)
  - ABNORMAL BEHAVIOUR [None]
